FAERS Safety Report 17470573 (Version 1)
Quarter: 2020Q1

REPORT INFORMATION
  Report Type: Spontaneous
  Country: CA (occurrence: CA)
  Receive Date: 20200227
  Receipt Date: 20200227
  Transmission Date: 20200409
  Serious: Yes (Other)
  Sender: FDA-Public Use
  Company Number: CA-ALLERGAN-2008610US

PATIENT
  Sex: Female

DRUGS (2)
  1. HUMIRA [Suspect]
     Active Substance: ADALIMUMAB
     Indication: CROHN^S DISEASE
     Dosage: 40 MG, Q2WEEKS
     Route: 058
  2. CONSTELLA [Suspect]
     Active Substance: LINACLOTIDE
     Indication: GASTROENTERITIS
     Dosage: 145 MG, QD
     Route: 048

REACTIONS (8)
  - White blood cell count abnormal [Recovered/Resolved]
  - Malaise [Recovered/Resolved]
  - Diarrhoea [Recovered/Resolved]
  - Contusion [Recovered/Resolved]
  - Off label use [Unknown]
  - Dry mouth [Recovered/Resolved]
  - Gastroenteritis [Recovered/Resolved]
  - Lung neoplasm malignant [Recovered/Resolved]
